FAERS Safety Report 4865467-3 (Version None)
Quarter: 2005Q4

REPORT INFORMATION
  Report Type: 
  Country: None (occurrence: None)
  Receive Date: 20051223
  Receipt Date: 20051214
  Transmission Date: 20060501
  Serious: Yes (Hospitalization)
  Sender: FDA-Public Use
  Company Number: JP-ROCHE-428859

PATIENT
  Age: 16 Year
  Sex: Female
  Weight: 50 kg

DRUGS (5)
  1. TAMIFLU [Suspect]
     Indication: INFLUENZA
     Route: 048
     Dates: start: 20010307
  2. FLUMEZIN [Concomitant]
     Route: 048
     Dates: start: 20010220
  3. PROMETHAZINE HCL [Concomitant]
     Route: 048
     Dates: start: 20010220
  4. MEILAX [Concomitant]
     Route: 048
     Dates: start: 20010220
  5. DEPAS [Concomitant]
     Dosage: ONE TO TWO DOSES TAKEN DAILY AS NEEDED.
     Route: 048
     Dates: start: 20010220

REACTIONS (7)
  - CONVULSION [None]
  - DELUSION [None]
  - DEPRESSION [None]
  - ELECTROENCEPHALOGRAM ABNORMAL [None]
  - HALLUCINATION [None]
  - HYPERVENTILATION [None]
  - INAPPROPRIATE AFFECT [None]
